FAERS Safety Report 5786304-9 (Version None)
Quarter: 2008Q2

REPORT INFORMATION
  Report Type: 
  Country: None (occurrence: None)
  Receive Date: 20080624
  Receipt Date: 20080616
  Transmission Date: 20081010
  Serious: Yes (Other)
  Sender: FDA-Public Use
  Company Number: US-WYE-H02126808

PATIENT
  Sex: Male
  Weight: 36.2 kg

DRUGS (3)
  1. BENEFIX [Suspect]
     Indication: HAEMOPHILIA
     Dosage: 2000 UNITS
     Route: 042
     Dates: start: 20080101
  2. BENEFIX [Suspect]
     Dosage: 1100 UNITS AS NEEDED (ON DEMAND)
     Route: 042
     Dates: start: 19970101
  3. BENEFIX [Suspect]
     Dosage: 2200 UNITS
     Route: 042
     Dates: start: 20080101

REACTIONS (3)
  - DRUG EFFECT DECREASED [None]
  - HAEMARTHROSIS [None]
  - MOUTH HAEMORRHAGE [None]
